FAERS Safety Report 6754609-0 (Version None)
Quarter: 2010Q2

REPORT INFORMATION
  Report Type: 
  Country: None (occurrence: None)
  Receive Date: 20100603
  Receipt Date: 20100524
  Transmission Date: 20101027
  Serious: Yes (Hospitalization)
  Sender: FDA-Public Use
  Company Number: US-MYLANLABS-2010S1009393

PATIENT
  Age: 78 Year
  Sex: Male

DRUGS (6)
  1. APIXABAN [Suspect]
     Indication: THROMBOSIS PROPHYLAXIS
     Route: 048
     Dates: start: 20090602, end: 20090622
  2. ACETYLSALICYLIC ACID [Suspect]
     Indication: THROMBOSIS PROPHYLAXIS
     Route: 048
     Dates: start: 20090602, end: 20090622
  3. PLACEBO [Suspect]
     Indication: THROMBOSIS PROPHYLAXIS
     Route: 048
     Dates: start: 20090602, end: 20090622
  4. BACLOFEN [Suspect]
     Dates: start: 20090701, end: 20090619
  5. ACERTIL [Concomitant]
     Dates: start: 20090309
  6. DILTIAZEM HCL [Concomitant]
     Dates: start: 20090427

REACTIONS (2)
  - HEPATOTOXICITY [None]
  - URINARY TRACT INFECTION [None]
